FAERS Safety Report 4572288-8 (Version None)
Quarter: 2005Q1

REPORT INFORMATION
  Report Type: 
  Country: None (occurrence: None)
  Receive Date: 20050203
  Receipt Date: 20050127
  Transmission Date: 20050727
  Serious: Yes (Death, Hospitalization)
  Sender: FDA-Public Use
  Company Number: 2005-01-1822

PATIENT
  Sex: Female

DRUGS (4)
  1. TEMODAL [Suspect]
     Indication: GLIOBLASTOMA
     Dosage: SEE IMAGE
     Route: 048
     Dates: start: 20041015
  2. TEMODAL [Suspect]
     Indication: GLIOBLASTOMA
     Dosage: SEE IMAGE
     Route: 048
     Dates: start: 20041015
  3. TEMODAL [Suspect]
     Indication: GLIOBLASTOMA
     Dosage: SEE IMAGE
     Route: 048
     Dates: start: 20041119
  4. METHYLPREDNISOLONE [Concomitant]

REACTIONS (2)
  - BACTERIAL SEPSIS [None]
  - PNEUMOCYSTIS JIROVECI PNEUMONIA [None]
